FAERS Safety Report 23304619 (Version 1)
Quarter: 2023Q4

REPORT INFORMATION
  Report Type: Spontaneous
  Country: PT (occurrence: PT)
  Receive Date: 20231218
  Receipt Date: 20231218
  Transmission Date: 20240109
  Serious: Yes (Other)
  Sender: FDA-Public Use
  Company Number: None

PATIENT
  Age: 72 Year
  Sex: Female

DRUGS (6)
  1. DAPTOMYCIN [Suspect]
     Active Substance: DAPTOMYCIN
     Indication: Infection
     Dates: start: 20201120, end: 20201129
  2. VANCOMYCIN [Suspect]
     Active Substance: VANCOMYCIN
     Indication: Infection
     Dates: start: 20201116, end: 20201119
  3. ACETAMINOPHEN [Concomitant]
     Active Substance: ACETAMINOPHEN
     Dosage: IN SOS
  4. PANTOPRAZOLE [Concomitant]
     Active Substance: PANTOPRAZOLE
  5. SIMVASTATIN [Concomitant]
     Active Substance: SIMVASTATIN
  6. BROTIZOLAM [Concomitant]
     Active Substance: BROTIZOLAM

REACTIONS (19)
  - Nausea [Unknown]
  - Erythema [Unknown]
  - Pyrexia [Unknown]
  - Malaise [Unknown]
  - Rash pruritic [Unknown]
  - Tremor [Unknown]
  - Wheezing [Unknown]
  - Face oedema [Unknown]
  - Rash [Unknown]
  - Pruritus [Unknown]
  - Urticaria [Unknown]
  - Vomiting [Unknown]
  - Feeling hot [Unknown]
  - Hypertensive crisis [Unknown]
  - Chest pain [Unknown]
  - Periorbital oedema [Unknown]
  - Hyperhidrosis [Unknown]
  - Loss of consciousness [Recovered/Resolved]
  - Bladder sphincter atony [Unknown]

NARRATIVE: CASE EVENT DATE: 20201116
